FAERS Safety Report 9312735 (Version 2)
Quarter: 2013Q2

REPORT INFORMATION
  Report Type: Spontaneous
  Country: CA (occurrence: CA)
  Receive Date: 20130528
  Receipt Date: 20130603
  Transmission Date: 20140414
  Serious: Yes (Hospitalization, Other)
  Sender: FDA-Public Use
  Company Number: CA-PFIZER INC-2013162432

PATIENT
  Age: 18 Year
  Sex: Female

DRUGS (3)
  1. PARACETAMOL [Suspect]
     Dosage: 100 G, UNK
     Route: 048
  2. IBUPROFEN [Concomitant]
     Dosage: UNK
     Route: 048
  3. ALCOHOL [Concomitant]
     Dosage: UNK
     Route: 048

REACTIONS (4)
  - Overdose [Unknown]
  - Mental status changes [Unknown]
  - Metabolic acidosis [Recovered/Resolved]
  - Haemodialysis [None]
